FAERS Safety Report 4894664-6 (Version None)
Quarter: 2006Q1

REPORT INFORMATION
  Report Type: 
  Country: None (occurrence: None)
  Receive Date: 20060127
  Receipt Date: 20041230
  Transmission Date: 20060701
  Serious: Yes (Hospitalization, Other)
  Sender: FDA-Public Use
  Company Number: US-MERCK-0501USA00012

PATIENT
  Age: 35 Year
  Sex: Female
  Weight: 82 kg

DRUGS (9)
  1. VIOXX [Suspect]
     Indication: PAIN
     Route: 048
     Dates: start: 20020101, end: 20040101
  2. ATARAX [Concomitant]
     Route: 048
  3. AMBIEN [Concomitant]
     Route: 065
  4. LASIX [Concomitant]
     Route: 048
  5. ELAVIL [Concomitant]
     Route: 065
  6. VISTARIL [Concomitant]
     Route: 048
  7. HUMULIN 70/30 [Concomitant]
     Route: 065
  8. HUMULIN 70/30 [Concomitant]
     Route: 065
  9. PERCOCET [Concomitant]
     Route: 048

REACTIONS (36)
  - ACQUIRED CLAW TOE [None]
  - ANXIETY [None]
  - ARTERIAL OCCLUSIVE DISEASE [None]
  - CARDIAC FAILURE [None]
  - CARDIAC FAILURE CONGESTIVE [None]
  - CHEST PAIN [None]
  - CORONARY ARTERY DISEASE [None]
  - COUGH [None]
  - DIABETIC FOOT INFECTION [None]
  - DIZZINESS POSTURAL [None]
  - DYSPEPSIA [None]
  - DYSPNOEA [None]
  - ELECTROCARDIOGRAM PR PROLONGATION [None]
  - FATIGUE [None]
  - GANGRENE [None]
  - HAEMOGLOBIN DECREASED [None]
  - HEADACHE [None]
  - HYPOGLYCAEMIA [None]
  - HYPOTENSION [None]
  - HYPOVOLAEMIA [None]
  - INFECTION [None]
  - JOINT SWELLING [None]
  - LIMB INJURY [None]
  - LOCALISED INFECTION [None]
  - MENSTRUATION IRREGULAR [None]
  - MYOCARDIAL INFARCTION [None]
  - OSTEOMYELITIS [None]
  - OVERDOSE [None]
  - PAIN IN EXTREMITY [None]
  - PRURITUS [None]
  - RESPIRATORY TRACT INFECTION [None]
  - SARCOIDOSIS [None]
  - SKIN LESION [None]
  - SKIN ULCER [None]
  - SYNCOPE [None]
  - URINARY TRACT INFECTION [None]
